FAERS Safety Report 9580531 (Version 1)
Quarter: 2013Q3

REPORT INFORMATION
  Report Type: Spontaneous
  Country: US (occurrence: None)
  Receive Date: 20130930
  Receipt Date: 20130930
  Transmission Date: 20140515
  Serious: Yes (Other)
  Sender: FDA-Public Use
  Company Number: AUR-APL-2013-07825

PATIENT
  Sex: Female

DRUGS (4)
  1. LIDOCAINE [Suspect]
     Indication: ANALGESIC THERAPY
     Dosage: 11.5 MG/ HR, UNKNOWN
  2. MAGNESIUM SULFATE [Suspect]
     Dosage: 2 GM, UNKNOWN
  3. KETAMINE [Suspect]
     Indication: ANALGESIC THERAPY
     Dosage: 6 GM/ HOUR, UNKNOWN
  4. HETASTARCH [Concomitant]

REACTIONS (6)
  - Procedural haemorrhage [None]
  - Haematocrit decreased [None]
  - Platelet function test abnormal [None]
  - Post procedural complication [None]
  - Hypercoagulation [None]
  - Therapeutic response unexpected [None]
